FAERS Safety Report 21416971 (Version 1)
Quarter: 2022Q4

REPORT INFORMATION
  Report Type: Spontaneous
  Country: AT (occurrence: AT)
  Receive Date: 20221006
  Receipt Date: 20221006
  Transmission Date: 20230113
  Serious: Yes (Disabling)
  Sender: FDA-Public Use
  Company Number: AT-PFIZER INC-PV202200067083

PATIENT
  Age: 39 Year
  Sex: Female
  Weight: 62 kg

DRUGS (10)
  1. PAXLOVID [Interacting]
     Active Substance: NIRMATRELVIR\RITONAVIR
     Indication: COVID-19 treatment
     Dosage: 3 DF, 2X/DAY
     Route: 048
     Dates: start: 20220808, end: 20220813
  2. CYCLOSPORINE [Interacting]
     Active Substance: CYCLOSPORINE
     Indication: Immunosuppression
     Dosage: 50 MG, 2X/DAY
  3. CYCLOSPORINE [Interacting]
     Active Substance: CYCLOSPORINE
     Indication: Immunosuppression
     Dosage: 25 MG, 2X/DAY
     Dates: start: 20220827
  4. CELLCEPT [Concomitant]
     Active Substance: MYCOPHENOLATE MOFETIL
     Dosage: 500 MG, 2X/DAY
  5. PREDNISOLONE [Concomitant]
     Active Substance: PREDNISOLONE
     Dosage: 5 MG, 1X/DAY
  6. ENALAPRIL MALEATE\LERCANIDIPINE HYDROCHLORIDE [Concomitant]
     Active Substance: ENALAPRIL MALEATE\LERCANIDIPINE HYDROCHLORIDE
     Dosage: 20 MG, 1X/DAY
  7. RILMENIDIN RATIOPHARM [Concomitant]
     Dosage: 1 MG, 2X/DAY
  8. ATORVASTATIN +PHARMA [Concomitant]
     Dosage: 20 MG, 1X/DAY
  9. ARANESP [Concomitant]
     Active Substance: DARBEPOETIN ALFA
     Dosage: 40 UG, WEEKLY
  10. PANTOPRAZOLE SODIUM [Concomitant]
     Active Substance: PANTOPRAZOLE SODIUM
     Dosage: 20 MG, 1X/DAY (1-0-0)

REACTIONS (4)
  - Off label use [Recovered/Resolved with Sequelae]
  - Intentional product use issue [Recovered/Resolved with Sequelae]
  - Labelled drug-drug interaction medication error [Recovered/Resolved with Sequelae]
  - Drug level increased [Recovered/Resolved with Sequelae]

NARRATIVE: CASE EVENT DATE: 20020817
